FAERS Safety Report 18191113 (Version 2)
Quarter: 2021Q2

REPORT INFORMATION
  Report Type: Spontaneous
  Country: US (occurrence: US)
  Receive Date: 20200825
  Receipt Date: 20210416
  Transmission Date: 20210717
  Serious: Yes (Death, Other)
  Sender: FDA-Public Use
  Company Number: US-ASTRAZENECA-2020SF04962

PATIENT
  Age: 24282 Day
  Sex: Female
  Weight: 52.6 kg

DRUGS (54)
  1. PRILOSEC OTC [Suspect]
     Active Substance: OMEPRAZOLE MAGNESIUM
     Indication: GASTROOESOPHAGEAL REFLUX DISEASE
     Route: 048
     Dates: start: 200601, end: 201812
  2. VALSARTAN. [Concomitant]
     Active Substance: VALSARTAN
  3. MIRTAZAPINE. [Concomitant]
     Active Substance: MIRTAZAPINE
  4. BETAMETHASONE. [Concomitant]
     Active Substance: BETAMETHASONE
  5. CITALOPRAM [Concomitant]
     Active Substance: CITALOPRAM HYDROBROMIDE
  6. CLINDAMYCIN. [Concomitant]
     Active Substance: CLINDAMYCIN
  7. NEXIUM [Suspect]
     Active Substance: ESOMEPRAZOLE MAGNESIUM
     Indication: GASTROOESOPHAGEAL REFLUX DISEASE
     Route: 048
     Dates: start: 2006, end: 2018
  8. LEVOFLOXACIN. [Concomitant]
     Active Substance: LEVOFLOXACIN
  9. ALPRAZOLAM. [Concomitant]
     Active Substance: ALPRAZOLAM
  10. CLOPIDOGREL [Concomitant]
     Active Substance: CLOPIDOGREL BISULFATE
  11. ZOSTAVAX [Concomitant]
     Active Substance: VARICELLA-ZOSTER VIRUS STRAIN OKA/MERCK LIVE ANTIGEN
  12. CARVEDILOL. [Concomitant]
     Active Substance: CARVEDILOL
  13. FLUCONAZOLE. [Concomitant]
     Active Substance: FLUCONAZOLE
  14. RAMIPRIL. [Concomitant]
     Active Substance: RAMIPRIL
  15. MEGESTROL [Concomitant]
     Active Substance: MEGESTROL
  16. DICLOFENAC [Concomitant]
     Active Substance: DICLOFENAC
  17. NEXIUM [Suspect]
     Active Substance: ESOMEPRAZOLE MAGNESIUM
     Indication: GASTROOESOPHAGEAL REFLUX DISEASE
     Dosage: GENERIC
     Route: 065
     Dates: end: 2017
  18. PREVACID [Suspect]
     Active Substance: LANSOPRAZOLE
     Indication: GASTROOESOPHAGEAL REFLUX DISEASE
     Route: 065
     Dates: start: 2006, end: 2018
  19. MONTELUKAST [Concomitant]
     Active Substance: MONTELUKAST SODIUM
  20. OXYBUTYNIN. [Concomitant]
     Active Substance: OXYBUTYNIN CHLORIDE
  21. TRAMADOL. [Concomitant]
     Active Substance: TRAMADOL
  22. AMOX?CLAV [Concomitant]
     Active Substance: AMOXICILLIN\CLAVULANATE POTASSIUM
  23. CLOTRIMAZOLE AND BETAMETHASONE DIPROPIONATE [Concomitant]
     Active Substance: BETAMETHASONE\BETAMETHASONE DIPROPIONATE\CLOTRIMAZOLE
  24. CEPHALEXIN. [Concomitant]
     Active Substance: CEPHALEXIN
  25. CYANOCOBALAMIN. [Concomitant]
     Active Substance: CYANOCOBALAMIN
  26. AMLODIPINE [Concomitant]
     Active Substance: AMLODIPINE BESYLATE
  27. KETOROLAC [Concomitant]
     Active Substance: KETOROLAC TROMETHAMINE
  28. SIMVASTATIN. [Concomitant]
     Active Substance: SIMVASTATIN
  29. METHYLPREDNISOLONE. [Concomitant]
     Active Substance: METHYLPREDNISOLONE
  30. CYCLOBENZAPRINE. [Concomitant]
     Active Substance: CYCLOBENZAPRINE
  31. TERCONAZOLE. [Concomitant]
     Active Substance: TERCONAZOLE
  32. TERCONAZOLE. [Concomitant]
     Active Substance: TERCONAZOLE
  33. AMPHETAMINE [Concomitant]
     Active Substance: AMPHETAMINE
  34. NEXIUM [Suspect]
     Active Substance: ESOMEPRAZOLE MAGNESIUM
     Indication: GASTROOESOPHAGEAL REFLUX DISEASE
     Route: 048
     Dates: start: 200601, end: 201812
  35. PREVNAR [Concomitant]
     Active Substance: PNEUMOCOCCAL 7-VALENT CONJUGATE VACCINE (DIPHTHERIA CRM197 PROTEIN)
  36. TEMAZEPAM. [Concomitant]
     Active Substance: TEMAZEPAM
  37. PERPHENAZINE. [Concomitant]
     Active Substance: PERPHENAZINE
  38. NITROGLYCERIN. [Concomitant]
     Active Substance: NITROGLYCERIN
  39. ASPIRIN. [Concomitant]
     Active Substance: ASPIRIN
  40. TIZANIDINE. [Concomitant]
     Active Substance: TIZANIDINE
  41. GABAPENTIN. [Concomitant]
     Active Substance: GABAPENTIN
  42. LISINOPRIL. [Concomitant]
     Active Substance: LISINOPRIL
  43. NEXIUM 24HR [Suspect]
     Active Substance: ESOMEPRAZOLE MAGNESIUM
     Indication: GASTROOESOPHAGEAL REFLUX DISEASE
     Route: 048
     Dates: start: 200601, end: 201812
  44. NEXIUM 24HR [Suspect]
     Active Substance: ESOMEPRAZOLE MAGNESIUM
     Indication: GASTROOESOPHAGEAL REFLUX DISEASE
     Route: 048
     Dates: start: 2014, end: 2018
  45. PRILOSEC OTC [Suspect]
     Active Substance: OMEPRAZOLE MAGNESIUM
     Indication: GASTROOESOPHAGEAL REFLUX DISEASE
     Route: 048
     Dates: start: 2006, end: 2018
  46. PREVACID [Suspect]
     Active Substance: LANSOPRAZOLE
     Indication: GASTROOESOPHAGEAL REFLUX DISEASE
     Route: 065
     Dates: start: 200601, end: 201812
  47. ROSUVASTATIN. [Concomitant]
     Active Substance: ROSUVASTATIN
  48. CIPROFLOXACIN. [Concomitant]
     Active Substance: CIPROFLOXACIN
  49. MELOXICAM. [Concomitant]
     Active Substance: MELOXICAM
  50. METRONIDAZOLE. [Concomitant]
     Active Substance: METRONIDAZOLE
  51. VICODIN [Concomitant]
     Active Substance: ACETAMINOPHEN\HYDROCODONE BITARTRATE
  52. AMOXICILLIN. [Concomitant]
     Active Substance: AMOXICILLIN
  53. FLUVIRIN NOS [Concomitant]
     Active Substance: INFLUENZA VIRUS VACCINE
  54. ZYRTEC [Concomitant]
     Active Substance: CETIRIZINE HYDROCHLORIDE

REACTIONS (1)
  - Chronic kidney disease [Unknown]

NARRATIVE: CASE EVENT DATE: 20160817
